FAERS Safety Report 23972834 (Version 1)
Quarter: 2024Q2

REPORT INFORMATION
  Report Type: Report from Study
  Country: US (occurrence: None)
  Receive Date: 20240613
  Receipt Date: 20240613
  Transmission Date: 20240716
  Serious: Yes (Hospitalization)
  Sender: FDA-Public Use
  Company Number: 2024A133792

PATIENT
  Age: 23504 Day
  Sex: Female

DRUGS (1)
  1. LYNPARZA [Suspect]
     Active Substance: OLAPARIB
     Indication: Ovarian cancer
     Route: 048
     Dates: start: 20240410, end: 20240508

REACTIONS (3)
  - Dehydration [Unknown]
  - Blood creatinine increased [Unknown]
  - Product use issue [Unknown]

NARRATIVE: CASE EVENT DATE: 20240508
